FAERS Safety Report 10739192 (Version 1)
Quarter: 2015Q1

REPORT INFORMATION
  Report Type: Spontaneous
  Country: US (occurrence: US)
  Receive Date: 20150126
  Receipt Date: 20150126
  Transmission Date: 20150721
  Serious: No
  Sender: FDA-Public Use
  Company Number: US-PFIZER INC-2015027983

PATIENT
  Age: 30 Year
  Sex: Male
  Weight: 79 kg

DRUGS (1)
  1. VIAGRA [Suspect]
     Active Substance: SILDENAFIL CITRATE
     Indication: GENITAL DISORDER MALE
     Dosage: UNK
     Dates: start: 20150101

REACTIONS (3)
  - Penis disorder [Unknown]
  - Skin odour abnormal [Not Recovered/Not Resolved]
  - Painful erection [Not Recovered/Not Resolved]

NARRATIVE: CASE EVENT DATE: 20150101
